FAERS Safety Report 4466132-7 (Version None)
Quarter: 2004Q3

REPORT INFORMATION
  Report Type: 
  Country: None (occurrence: None)
  Receive Date: 20040930
  Receipt Date: 20040915
  Transmission Date: 20050211
  Serious: Yes (Other)
  Sender: FDA-Public Use
  Company Number: 2004234223GB

PATIENT
  Age: 50 Year
  Sex: Female
  Weight: 68 kg

DRUGS (2)
  1. DOXORUBICIN HCL [Suspect]
     Indication: BREAST CANCER
     Dosage: 90 MG, SINGLE, IV DRIP
     Route: 041
     Dates: start: 20040316, end: 20040316
  2. ONDANSETRON HCL [Concomitant]

REACTIONS (7)
  - CHEST PAIN [None]
  - DISORIENTATION [None]
  - ERYTHEMA [None]
  - HYPERSENSITIVITY [None]
  - HYPERTENSION [None]
  - PARAESTHESIA ORAL [None]
  - TACHYCARDIA [None]
